FAERS Safety Report 22948571 (Version 2)
Quarter: 2023Q4

REPORT INFORMATION
  Report Type: Spontaneous
  Country: BR (occurrence: BR)
  Receive Date: 20230915
  Receipt Date: 20231103
  Transmission Date: 20240110
  Serious: Yes (Hospitalization, Other)
  Sender: FDA-Public Use
  Company Number: BR-BRISTOL-MYERS SQUIBB COMPANY-2023-131029

PATIENT
  Age: 28 Year
  Sex: Male

DRUGS (1)
  1. REVLIMID [Suspect]
     Active Substance: LENALIDOMIDE
     Indication: Plasma cell myeloma
     Dosage: FREQ : 21 DAYS ON AND 7 DAYS OFF
     Route: 048
     Dates: end: 202308

REACTIONS (3)
  - Plasma cell myeloma [Unknown]
  - Spinal cord compression [Unknown]
  - Plasmacytoma [Unknown]
